FAERS Safety Report 5342779-0 (Version None)
Quarter: 2007Q2

REPORT INFORMATION
  Report Type: 
  Country: None (occurrence: None)
  Receive Date: 20070601
  Receipt Date: 20070522
  Transmission Date: 20071010
  Serious: Yes (Hospitalization)
  Sender: FDA-Public Use
  Company Number: FR-PFIZER INC-2007041936

PATIENT
  Age: 63 Year
  Sex: Male

DRUGS (3)
  1. SUTENT [Suspect]
     Route: 048
     Dates: start: 20070101, end: 20070222
  2. AMIODARONE HYDROCHLORIDE [Concomitant]
     Route: 048
  3. PRAVASTATIN [Concomitant]
     Route: 048

REACTIONS (5)
  - CYTOLYTIC HEPATITIS [None]
  - HEPATITIS [None]
  - HYPERKALAEMIA [None]
  - RENAL FAILURE [None]
  - THROMBOCYTOPENIA [None]
